FAERS Safety Report 18264402 (Version 1)
Quarter: 2020Q3

REPORT INFORMATION
  Report Type: Spontaneous
  Country: TR (occurrence: TR)
  Receive Date: 20200914
  Receipt Date: 20200914
  Transmission Date: 20201103
  Serious: Yes (Hospitalization, Other)
  Sender: FDA-Public Use
  Company Number: TR-TEVA-2020-TR-1828529

PATIENT
  Age: 17 Year
  Sex: Female

DRUGS (1)
  1. TETRADOX [DOXYCYCLINE] [Suspect]
     Active Substance: DOXYCYCLINE
     Indication: ACNE
     Dosage: 200 MILLIGRAM DAILY; TETRADOX 100 MG CAPSULE
     Route: 048
     Dates: start: 202008

REACTIONS (11)
  - Arthralgia [Recovered/Resolved]
  - Blood creatinine abnormal [Unknown]
  - Headache [Recovered/Resolved]
  - Decreased appetite [Recovered/Resolved]
  - Nausea [Recovered/Resolved]
  - Myalgia [Recovered/Resolved]
  - Blood count abnormal [Unknown]
  - Renal failure [Unknown]
  - Blood urea abnormal [Unknown]
  - Abdominal pain [Recovered/Resolved]
  - Diarrhoea [Recovered/Resolved]

NARRATIVE: CASE EVENT DATE: 202008
